FAERS Safety Report 19816294 (Version 1)
Quarter: 2021Q3

REPORT INFORMATION
  Report Type: Spontaneous
  Country: JP (occurrence: JP)
  Receive Date: 20210910
  Receipt Date: 20210910
  Transmission Date: 20211014
  Serious: Yes (Hospitalization, Other)
  Sender: FDA-Public Use
  Company Number: JP-UCBSA-2021042335

PATIENT
  Age: 53 Year
  Sex: Female

DRUGS (9)
  1. SERTRALINE [Concomitant]
     Active Substance: SERTRALINE HYDROCHLORIDE
     Indication: DEPRESSION
  2. PHENYTOIN. [Suspect]
     Active Substance: PHENYTOIN
     Indication: TEMPORAL LOBE EPILEPSY
     Dosage: 100 MILLIGRAM DAILY
  3. ZONISAMIDE. [Suspect]
     Active Substance: ZONISAMIDE
     Indication: TEMPORAL LOBE EPILEPSY
  4. E KEPPRA [Suspect]
     Active Substance: LEVETIRACETAM
     Indication: TEMPORAL LOBE EPILEPSY
     Dosage: 2000 MILLIGRAM, DAILY
     Route: 048
     Dates: start: 201807
  5. FOSPHENYTOIN [Concomitant]
     Active Substance: FOSPHENYTOIN
     Indication: EPILEPSY
     Dosage: 18MG/KG
  6. E KEPPRA [Suspect]
     Active Substance: LEVETIRACETAM
     Indication: FOCAL DYSCOGNITIVE SEIZURES
     Dosage: 2000 MILLIGRAM
     Route: 048
  7. PHENYTOIN. [Suspect]
     Active Substance: PHENYTOIN
     Indication: FOCAL DYSCOGNITIVE SEIZURES
     Dosage: 200 MILLIGRAM DAILY
  8. SULPIRIDE [Concomitant]
     Active Substance: SULPIRIDE
     Indication: DEPRESSION
  9. ZONISAMIDE. [Suspect]
     Active Substance: ZONISAMIDE
     Indication: FOCAL DYSCOGNITIVE SEIZURES
     Dosage: 300 MILLIGRAM DAILY

REACTIONS (11)
  - Cardio-respiratory arrest [Recovered/Resolved]
  - Treatment noncompliance [Unknown]
  - Ventricular tachycardia [Recovered/Resolved]
  - Multiple organ dysfunction syndrome [Unknown]
  - Partial seizures with secondary generalisation [Recovered/Resolved]
  - Pain in extremity [Unknown]
  - Somnolence [Unknown]
  - Electrocardiogram QT prolonged [Recovered/Resolved]
  - Infection [Unknown]
  - Multiple-drug resistance [Unknown]
  - Epilepsy [Recovered/Resolved]

NARRATIVE: CASE EVENT DATE: 201808
